FAERS Safety Report 18814340 (Version 1)
Quarter: 2021Q1

REPORT INFORMATION
  Report Type: Spontaneous
  Country: DE (occurrence: DE)
  Receive Date: 20210201
  Receipt Date: 20210201
  Transmission Date: 20210419
  Serious: Yes (Hospitalization, Other)
  Sender: FDA-Public Use
  Company Number: DE-AMGEN-DEUNI2021014833

PATIENT
  Age: 79 Year
  Sex: Female
  Weight: 59 kg

DRUGS (9)
  1. BENDAMUSTINE HYDROCHLORIDE. [Suspect]
     Active Substance: BENDAMUSTINE HYDROCHLORIDE
     Dosage: 112 MILLIGRAM, QD
     Route: 042
     Dates: start: 20170911, end: 20170912
  2. CARFILZOMIB [Suspect]
     Active Substance: CARFILZOMIB
     Dosage: 43.2 MILLIGRAM/SQ. METER, QD
     Route: 042
     Dates: start: 20170911, end: 20170912
  3. BENDAMUSTINE HYDROCHLORIDE. [Suspect]
     Active Substance: BENDAMUSTINE HYDROCHLORIDE
     Indication: PLASMA CELL MYELOMA
     Dosage: 111.9 UNKNOWN UNITS, ONCE DAILY
     Route: 042
     Dates: start: 20170223
  4. BENDAMUSTINE HYDROCHLORIDE. [Suspect]
     Active Substance: BENDAMUSTINE HYDROCHLORIDE
     Dosage: 111.9 UNKNOWN UNITS, ONCE DAILY
     Route: 042
     Dates: start: 20170821, end: 20170821
  5. CARFILZOMIB [Suspect]
     Active Substance: CARFILZOMIB
     Dosage: 43.2 MILLIGRAM/SQ. METER, QD
     Route: 042
     Dates: start: 20170821, end: 20170821
  6. DEXAMETHASONE. [Suspect]
     Active Substance: DEXAMETHASONE
     Dosage: 20 MILLIGRAM, QD
     Route: 042
     Dates: start: 20170911, end: 20170912
  7. CARFILZOMIB [Suspect]
     Active Substance: CARFILZOMIB
     Indication: PLASMA CELL MYELOMA
     Dosage: 43.2 MILLIGRAM, QD
     Route: 042
     Dates: start: 20170223
  8. DEXAMETHASONE. [Suspect]
     Active Substance: DEXAMETHASONE
     Dosage: 20 MILLIGRAM, QD
     Route: 042
     Dates: start: 20170821, end: 20170821
  9. DEXAMETHASONE. [Suspect]
     Active Substance: DEXAMETHASONE
     Indication: PRODUCT USED FOR UNKNOWN INDICATION
     Dosage: 20 MILLIGRAM, QD
     Route: 042
     Dates: start: 20170223

REACTIONS (2)
  - Pneumonia bacterial [Recovered/Resolved]
  - Syncope [Recovered/Resolved]

NARRATIVE: CASE EVENT DATE: 20170821
